FAERS Safety Report 7701070-5 (Version None)
Quarter: 2011Q3

REPORT INFORMATION
  Report Type: 
  Country: None (occurrence: None)
  Receive Date: 20110817
  Receipt Date: 20110727
  Transmission Date: 20111222
  Serious: Yes (Other)
  Sender: FDA-Public Use
  Company Number: JPI-P-016570

PATIENT
  Age: 47 Year
  Sex: Female

DRUGS (3)
  1. XYREM [Suspect]
     Indication: NARCOLEPSY
     Dosage: 3,9 GM (1.5, 4.5  GM, 2 IN 1 D), ORAL
     Route: 048
     Dates: start: 20071109
  2. XYREM [Suspect]
     Indication: NARCOLEPSY
     Dosage: 3,9 GM (1.5, 4.5  GM, 2 IN 1 D), ORAL
     Route: 048
     Dates: start: 20090903
  3. XYREM [Suspect]
     Indication: NARCOLEPSY
     Dosage: 3,9 GM (1.5, 4.5  GM, 2 IN 1 D), ORAL
     Route: 048
     Dates: end: 20090902

REACTIONS (2)
  - MALIGNANT NEOPLASM OF CONJUNCTIVA [None]
  - SQUAMOUS CELL CARCINOMA [None]
